FAERS Safety Report 16018730 (Version 4)
Quarter: 2019Q3

REPORT INFORMATION
  Report Type: Report from Study
  Country: HU (occurrence: HU)
  Receive Date: 20190228
  Receipt Date: 20190913
  Transmission Date: 20191004
  Serious: Yes (Hospitalization)
  Sender: FDA-Public Use
  Company Number: HU-PFIZER INC-2019084313

PATIENT
  Age: 66 Year
  Sex: Male
  Weight: 73 kg

DRUGS (13)
  1. BLINDED PLACEBO [Suspect]
     Active Substance: INVESTIGATIONAL PRODUCT
     Indication: SQUAMOUS CELL CARCINOMA OF HEAD AND NECK
     Dosage: DAY 1 OF LEAD-IN PH., DAYS 8-25-39 OF CRT PH, EVERY 2 WEEKS DURING MAINTENANCE PHASE
     Route: 041
     Dates: start: 20181205, end: 20190107
  2. DOLFORIN [Concomitant]
     Active Substance: FENTANYL
     Indication: PAIN
     Dosage: 25 UG/HOUR, EVERY 3 DAYS (72 HOURLY)
     Route: 062
     Dates: start: 20181231
  3. BLINDED MSB0010718C [Suspect]
     Active Substance: AVELUMAB
     Indication: SQUAMOUS CELL CARCINOMA OF HEAD AND NECK
     Dosage: DAY 1 OF LEAD-IN PH., DAYS 8-25-39 OF CRT PH, EVERY 2 WEEKS DURING MAINTENANCE PHASE
     Route: 041
     Dates: start: 20181205, end: 20190107
  4. MEDROL [Suspect]
     Active Substance: METHYLPREDNISOLONE
     Dosage: 8 MG, 2X/DAY
     Route: 048
     Dates: start: 20190205, end: 20190213
  5. BLINDED AVELUMAB [Suspect]
     Active Substance: AVELUMAB
     Indication: SQUAMOUS CELL CARCINOMA OF HEAD AND NECK
     Dosage: DAY 1 OF LEAD-IN PH., DAYS 8-25-39 OF CRT PH, EVERY 2 WEEKS DURING MAINTENANCE PHASE
     Route: 041
     Dates: start: 20181205, end: 20190107
  6. MEDROL [Suspect]
     Active Substance: METHYLPREDNISOLONE
     Dosage: 4 MG, 2X/DAY
     Route: 048
     Dates: start: 20190214, end: 20190311
  7. MYCOSYST [Concomitant]
     Active Substance: FLUCONAZOLE
     Indication: FUNGAL INFECTION
     Dosage: 150 MG, 1X/DAY
     Route: 048
     Dates: start: 20190211, end: 20190214
  8. CISPLATIN. [Suspect]
     Active Substance: CISPLATIN
     Indication: SQUAMOUS CELL CARCINOMA OF HEAD AND NECK
     Dosage: 145 MG, CYCLIC, REGIMEN: DAYS 1, 22, 43 OF CRT PHASE
     Route: 041
     Dates: start: 20181212, end: 20190103
  9. CONTROLOC [Concomitant]
     Active Substance: PANTOPRAZOLE SODIUM
     Indication: PROPHYLAXIS
     Dosage: 40 MG, 1X/DAY
     Route: 048
     Dates: start: 20190119
  10. SOLU-MEDROL [Concomitant]
     Active Substance: METHYLPREDNISOLONE SODIUM SUCCINATE
     Indication: TRACHEITIS
     Dosage: 125 MG, 2X/DAY
     Route: 042
     Dates: start: 20190119, end: 20190124
  11. SOLU-MEDROL [Concomitant]
     Active Substance: METHYLPREDNISOLONE SODIUM SUCCINATE
     Dosage: 40 MG, 1X/DAY
     Route: 042
     Dates: start: 20190129, end: 20190130
  12. SOLU-MEDROL [Concomitant]
     Active Substance: METHYLPREDNISOLONE SODIUM SUCCINATE
     Dosage: 80 MG, 2X/DAY
     Route: 042
     Dates: start: 20190124, end: 20190128
  13. MEDROL [Suspect]
     Active Substance: METHYLPREDNISOLONE
     Indication: TRACHEITIS
     Dosage: 16 MG, 2X/DAY
     Route: 048
     Dates: start: 20190131, end: 20190204

REACTIONS (2)
  - Hyperglycaemia [Recovered/Resolved]
  - Pyrexia [Recovered/Resolved]

NARRATIVE: CASE EVENT DATE: 20190220
